FAERS Safety Report 11073551 (Version 1)
Quarter: 2015Q2

REPORT INFORMATION
  Report Type: Report from Study
  Country: IT (occurrence: IT)
  Receive Date: 20150428
  Receipt Date: 20150428
  Transmission Date: 20150821
  Serious: Yes (Death)
  Sender: FDA-Public Use
  Company Number: IT-SA-2015SA054582

PATIENT
  Sex: Female

DRUGS (1)
  1. DOCETAXEL. [Suspect]
     Active Substance: DOCETAXEL
     Indication: BREAST CANCER
     Dosage: ADMINISTERED OVER 1 HR ON DAYS 1, 8 AND 15 EVERY 4 WEEKS
     Route: 042

REACTIONS (1)
  - Gastrointestinal necrosis [Fatal]
